FAERS Safety Report 23646528 (Version 2)
Quarter: 2024Q2

REPORT INFORMATION
  Report Type: Report from Study
  Country: US (occurrence: US)
  Receive Date: 20240319
  Receipt Date: 20240417
  Transmission Date: 20240716
  Serious: Yes (Hospitalization, Other)
  Sender: FDA-Public Use
  Company Number: US-UCBSA-2024009136

PATIENT
  Age: 82 Year
  Sex: Female

DRUGS (1)
  1. ROZANOLIXIZUMAB [Suspect]
     Active Substance: ROZANOLIXIZUMAB
     Indication: Myasthenia gravis
     Dosage: 560MG (4ML) VIA SUBCUTANEOUS INFUSION ONCE WEEKLY FOR SIX WEEKS
     Route: 058
     Dates: start: 20231219

REACTIONS (8)
  - Dyspnoea [Unknown]
  - Fall [Unknown]
  - Upper limb fracture [Unknown]
  - Mouth injury [Unknown]
  - Tooth injury [Unknown]
  - Urine output decreased [Not Recovered/Not Resolved]
  - Speech disorder [Not Recovered/Not Resolved]
  - Eating disorder [Not Recovered/Not Resolved]

NARRATIVE: CASE EVENT DATE: 20240228
